FAERS Safety Report 24631688 (Version 1)
Quarter: 2024Q4

REPORT INFORMATION
  Report Type: Report from Study
  Country: KR (occurrence: KR)
  Receive Date: 20241118
  Receipt Date: 20241118
  Transmission Date: 20250114
  Serious: Yes (Hospitalization)
  Sender: PFIZER
  Company Number: KR-PFIZER INC-PV202400130642

PATIENT
  Age: 25 Year
  Sex: Male
  Weight: 72 kg

DRUGS (6)
  1. CIBINQO [Suspect]
     Active Substance: ABROCITINIB
     Indication: Dermatitis atopic
     Dosage: 200 MG, 1X/DAY
     Route: 048
     Dates: start: 20240802, end: 20241007
  2. EVOPRIM [Concomitant]
     Indication: Dermatitis atopic
     Dosage: EVOPRIM SC
     Route: 048
     Dates: start: 20231026
  3. BEPOSTA SR [Concomitant]
     Indication: Dermatitis atopic
     Dosage: UNK
     Route: 048
     Dates: start: 20240411
  4. PROTOPIC [Concomitant]
     Active Substance: TACROLIMUS
     Indication: Vitiligo
     Dosage: UNK
     Route: 061
     Dates: start: 20240226
  5. ELIDEL [Concomitant]
     Active Substance: PIMECROLIMUS
     Indication: Dermatitis atopic
     Dosage: 30 G
     Route: 061
     Dates: start: 20231026
  6. RAMNOS [Concomitant]
     Indication: Dermatitis atopic
     Dosage: UNK
     Route: 048
     Dates: start: 20231026

REACTIONS (1)
  - Crohn^s disease [Recovering/Resolving]

NARRATIVE: CASE EVENT DATE: 20240914
